FAERS Safety Report 6235153-6 (Version None)
Quarter: 2009Q2

REPORT INFORMATION
  Report Type: 
  Country: None (occurrence: None)
  Receive Date: 20090618
  Receipt Date: 20090609
  Transmission Date: 20091009
  Serious: Yes (Hospitalization)
  Sender: FDA-Public Use
  Company Number: US-WYE-H09665309

PATIENT
  Sex: Female
  Weight: 66.2 kg

DRUGS (8)
  1. TEMSIROLIMUS [Suspect]
     Indication: MULTIPLE MYELOMA
     Route: 042
     Dates: end: 20090512
  2. VICODIN [Concomitant]
     Dosage: EVERY 6 HOURS PRN, DOSE NOT PROVIDED
  3. MULTI-VITAMINS [Concomitant]
     Dosage: DAILY, DOSE NOT PROVIDED
  4. COUMADIN [Concomitant]
     Dosage: 5 MG ALTERNATING WITH 6 MG EVERY OTHER DAY
  5. LISINOPRIL [Concomitant]
  6. CALTRATE [Concomitant]
     Dosage: TWICE A DAY, DOSE NOT PROVIDED
  7. VELCADE [Suspect]
     Indication: MULTIPLE MYELOMA
     Route: 042
     Dates: end: 20090512
  8. BIAXIN [Concomitant]
     Dosage: DOSE NOT PROVIDED, FREQUENCY TWICE  DAY

REACTIONS (2)
  - FLUID OVERLOAD [None]
  - PNEUMONIA [None]
